FAERS Safety Report 5899251-9 (Version None)
Quarter: 2008Q3

REPORT INFORMATION
  Report Type: 
  Country: None (occurrence: None)
  Receive Date: 20080925
  Receipt Date: 20080918
  Transmission Date: 20090109
  Serious: Yes (Hospitalization)
  Sender: FDA-Public Use
  Company Number: DK-ABBOTT-08P-044-0475077-00

PATIENT
  Sex: Female
  Weight: 63 kg

DRUGS (3)
  1. BIPERIDEN HYDROCHLORIDE TAB [Suspect]
     Indication: DRUG USE FOR UNKNOWN INDICATION
  2. PIPAMPERONE HYDROCHLORIDE [Interacting]
     Indication: ANXIETY
     Route: 048
     Dates: start: 20080822
  3. PIPAMPERONE HYDROCHLORIDE [Interacting]
     Route: 048

REACTIONS (7)
  - BRADYCARDIA [None]
  - CARDIAC ARREST [None]
  - DRUG INTERACTION [None]
  - FALL [None]
  - LABORATORY TEST ABNORMAL [None]
  - TACHYCARDIA [None]
  - UNEVALUABLE EVENT [None]
